FAERS Safety Report 4653249-7 (Version None)
Quarter: 2005Q2

REPORT INFORMATION
  Report Type: 
  Country: None (occurrence: None)
  Receive Date: 20050503
  Receipt Date: 20050414
  Transmission Date: 20051028
  Serious: Yes (Other)
  Sender: FDA-Public Use
  Company Number: WAES 0504USA01314

PATIENT
  Age: 72 Year
  Sex: Male

DRUGS (11)
  1. FOSAMAX [Suspect]
     Indication: OSTEOPOROSIS
     Dosage: 5 MG/DAILY PO
     Route: 048
     Dates: start: 20040114, end: 20041015
  2. PREDONINE (PREDNISOLONE) [Suspect]
     Indication: PACHYMENINGITIS
     Dosage: 22.5-50 MG/DAILY PO
     Route: 048
     Dates: start: 20031218
  3. SOLU-MEDROL [Suspect]
     Indication: PACHYMENINGITIS
     Dosage: 500 MG/DAILY DOSE # 16 IV
     Route: 042
     Dates: start: 20031218, end: 20040118
  4. DECADRON [Suspect]
     Indication: PACHYMENINGITIS
     Dosage: SEE IMAGE
     Route: 030
     Dates: start: 20040122, end: 20040311
  5. DECADRON [Suspect]
     Indication: PACHYMENINGITIS
     Dosage: SEE IMAGE
     Route: 030
     Dates: start: 20040525, end: 20040622
  6. IMURAN [Suspect]
     Indication: PACHYMENINGITIS
     Dosage: 50 MG/DAILY PO
     Route: 048
     Dates: start: 20040814, end: 20041006
  7. ALFAROL [Concomitant]
  8. RIFADIN [Concomitant]
  9. THYRADIN-S [Concomitant]
  10. CLARITHROMYCIN [Concomitant]
  11. PYRAZINAMIDE [Concomitant]

REACTIONS (6)
  - CHRONIC SINUSITIS [None]
  - HYPOACUSIS [None]
  - OTITIS MEDIA [None]
  - RESPIRATORY TRACT INFECTION [None]
  - STRIDOR [None]
  - THROMBOCYTOPENIA [None]
